FAERS Safety Report 4706284-4 (Version None)
Quarter: 2005Q3

REPORT INFORMATION
  Report Type: 
  Country: None (occurrence: None)
  Receive Date: 20050705
  Receipt Date: 20050622
  Transmission Date: 20060218
  Serious: Yes (Hospitalization, Other)
  Sender: FDA-Public Use
  Company Number: 2005UW09507

PATIENT
  Age: 22138 Day
  Sex: Female
  Weight: 59 kg

DRUGS (4)
  1. IRESSA [Suspect]
     Indication: NON-SMALL CELL LUNG CANCER
     Route: 048
     Dates: start: 20050407, end: 20050504
  2. AMITRIPTYLINE HCL [Concomitant]
     Indication: ANTIDEPRESSANT THERAPY
     Route: 048
     Dates: start: 19890101
  3. ESTROGEN [Concomitant]
     Indication: MENOPAUSAL SYMPTOMS
     Route: 048
     Dates: start: 19900101
  4. DIMENHYDRINATE [Concomitant]
     Indication: PROPHYLAXIS
     Route: 048
     Dates: start: 19800301

REACTIONS (2)
  - BRONCHOPLEURAL FISTULA [None]
  - PNEUMOTHORAX [None]
